FAERS Safety Report 5983920-6 (Version None)
Quarter: 2008Q4

REPORT INFORMATION
  Report Type: 
  Country: None (occurrence: None)
  Receive Date: 20081208
  Receipt Date: 20081201
  Transmission Date: 20090506
  Serious: Yes (Other)
  Sender: FDA-Public Use
  Company Number: US-ASTRAZENECA-2006UW00357

PATIENT
  Age: 942 Month
  Sex: Female
  Weight: 81.6 kg

DRUGS (7)
  1. TOPROL-XL [Suspect]
     Indication: HYPERTENSION
     Route: 048
     Dates: start: 19900101, end: 20060101
  2. TOPROL-XL [Suspect]
     Indication: HEART RATE IRREGULAR
     Route: 048
     Dates: start: 19900101, end: 20060101
  3. TOPROL-XL [Suspect]
     Route: 048
     Dates: start: 20060101
  4. TOPROL-XL [Suspect]
     Route: 048
     Dates: start: 20060101
  5. SYNTHROID [Concomitant]
  6. CLARITIN [Concomitant]
  7. SUPPLEMENTS [Concomitant]

REACTIONS (5)
  - CARDIAC OUTPUT DECREASED [None]
  - CATARACT OPERATION [None]
  - FEELING ABNORMAL [None]
  - HEART RATE DECREASED [None]
  - KNEE ARTHROPLASTY [None]
